FAERS Safety Report 14310152 (Version 2)
Quarter: 2017Q4

REPORT INFORMATION
  Report Type: Spontaneous
  Country: GR (occurrence: GR)
  Receive Date: 20171220
  Receipt Date: 20171221
  Transmission Date: 20180321
  Serious: Yes (Other)
  Sender: FDA-Public Use
  Company Number: GR-TEVA-2017-GR-831365

PATIENT
  Age: 19 Year
  Sex: Female

DRUGS (3)
  1. CISPLATIN. [Suspect]
     Active Substance: CISPLATIN
     Indication: OVARIAN CANCER
     Dosage: TWO CYCLES; FOLLOWED BY THREE CYCLES AFTER DECREASE IN CA125
     Route: 065
  2. ETOPOSIDE. [Suspect]
     Active Substance: ETOPOSIDE
     Indication: OVARIAN CANCER
     Dosage: TWO CYCLES; FOLLOWED BY THREE CYCLES AFTER DECREASE IN CA125
     Route: 065
  3. BLEOMYCIN [Suspect]
     Active Substance: BLEOMYCIN SULFATE
     Indication: OVARIAN CANCER
     Dosage: TWO CYCLES; FOLLOWED BY THREE CYCLES AFTER DECREASE IN CA125
     Route: 065

REACTIONS (4)
  - Thrombocytopenia [Unknown]
  - Product use in unapproved indication [Unknown]
  - Anaemia [Recovering/Resolving]
  - Neutropenia [Unknown]
